FAERS Safety Report 13290185 (Version 1)
Quarter: 2017Q1

REPORT INFORMATION
  Report Type: Spontaneous
  Country: US (occurrence: US)
  Receive Date: 20170303
  Receipt Date: 20170303
  Transmission Date: 20170428
  Serious: No
  Sender: FDA-Public Use
  Company Number: US-ASTRAZENECA-2017SE19735

PATIENT
  Age: 40 Year
  Sex: Male
  Weight: 78.5 kg

DRUGS (13)
  1. TESTOSTERONE. [Concomitant]
     Active Substance: TESTOSTERONE
     Dosage: 100 MG/ML, 1 MG INJECTION EVERY TWO WEEKS
     Route: 030
  2. LYRICA [Suspect]
     Active Substance: PREGABALIN
     Dosage: 100 MG ONE CAPSULE THREE TIMES A DAY
     Route: 048
  3. VITAMIN D [Concomitant]
     Active Substance: CHOLECALCIFEROL
     Dosage: 1000 MG DAILY
  4. VITAMIN D3 [Concomitant]
     Active Substance: CHOLECALCIFEROL
     Dosage: 1000 UNITS ONCE TABLET DAILY
     Route: 048
  5. METFORMIN HYDROCHLORIDE. [Concomitant]
     Active Substance: METFORMIN HYDROCHLORIDE
     Dosage: 1000 MG ONE TWICE A DAY
     Route: 048
  6. GLIPIZIDE. [Concomitant]
     Active Substance: GLIPIZIDE
     Indication: DIABETES MELLITUS
     Dosage: 10 MG ONE TABLET ONCE DAILY
     Route: 048
  7. HYDROCORTISONE. [Concomitant]
     Active Substance: HYDROCORTISONE
  8. SEROQUEL [Suspect]
     Active Substance: QUETIAPINE FUMARATE
     Indication: MENTAL DISORDER
     Dosage: 100 MG1-2  TWICE A DAY FOR TWO DAYS IF NEEDED FOR 30 DAYS
     Route: 048
  9. SEROQUEL [Suspect]
     Active Substance: QUETIAPINE FUMARATE
     Indication: MENTAL DISORDER
     Dosage: 25 MG ONE TWICE A DAY
     Route: 048
     Dates: end: 20170118
  10. MUPIROCIN. [Concomitant]
     Active Substance: MUPIROCIN
     Indication: SKIN INFECTION
     Dosage: 2 PERCENT , THREE TIMES A DAY
  11. NAPROXEN. [Concomitant]
     Active Substance: NAPROXEN
     Dosage: 500 MG AS NEEDED TWICE A DAY
     Route: 048
  12. RANITIDINE HYDROCHLORIDE. [Concomitant]
     Active Substance: RANITIDINE HYDROCHLORIDE
     Dosage: 300 MG AT BED TIMEONCE DAY
     Route: 048
  13. SEROQUEL [Suspect]
     Active Substance: QUETIAPINE FUMARATE
     Indication: MENTAL DISORDER
     Dosage: 100 MG TWICE A DAY FOR TWO DAYS
     Route: 048

REACTIONS (7)
  - Drug ineffective [Unknown]
  - Depression [Unknown]
  - Diabetic neuropathy [Unknown]
  - Lyme disease [Unknown]
  - Agitation [Unknown]
  - Carpal tunnel syndrome [Unknown]
  - Restless legs syndrome [Unknown]
